FAERS Safety Report 19627063 (Version 1)
Quarter: 2021Q3

REPORT INFORMATION
  Report Type: Spontaneous
  Country: US (occurrence: US)
  Receive Date: 20210728
  Receipt Date: 20210728
  Transmission Date: 20211014
  Serious: Yes (Death)
  Sender: FDA-Public Use
  Company Number: None

PATIENT
  Age: 58 Year
  Sex: Female

DRUGS (9)
  1. LORAZEPAM CON [Concomitant]
  2. PANTOPRAZOLE [Concomitant]
     Active Substance: PANTOPRAZOLE
  3. MORPHINE SUL [Concomitant]
     Active Substance: MORPHINE SULFATE
  4. ONDANSETRON ODT [Concomitant]
     Active Substance: ONDANSETRON
  5. HYOSYNE [Concomitant]
     Active Substance: HYOSCYAMINE SULFATE
  6. SANCUSO [Suspect]
     Active Substance: GRANISETRON
     Indication: OVARIAN CANCER
     Route: 061
     Dates: start: 20201229, end: 20210725
  7. FENTANYL DIS [Concomitant]
  8. ATROPINE SUL OP [Concomitant]
  9. PROMETHAZINE [Concomitant]
     Active Substance: PROMETHAZINE HYDROCHLORIDE

REACTIONS (1)
  - Death [None]

NARRATIVE: CASE EVENT DATE: 20210725
